FAERS Safety Report 26118889 (Version 1)
Quarter: 2025Q4

REPORT INFORMATION
  Report Type: Spontaneous
  Country: EU (occurrence: EU)
  Receive Date: 20251203
  Receipt Date: 20251203
  Transmission Date: 20260118
  Serious: Yes (Other)
  Sender: TEVA
  Company Number: None

PATIENT
  Age: 74 Year
  Sex: Female

DRUGS (1)
  1. ROSUVASTATIN [Suspect]
     Active Substance: ROSUVASTATIN
     Indication: Dyslipidaemia
     Dosage: ROSUVASTATIN 10 MG COATED TABLETS, SCORED ROSUVASTATIN CALCIUM, ONCE DAILY FOR A SINGLE WEEK
     Route: 048
     Dates: start: 201906, end: 201906

REACTIONS (2)
  - Loss of consciousness [Recovered/Resolved]
  - Myalgia [Recovered/Resolved]

NARRATIVE: CASE EVENT DATE: 20190601
